FAERS Safety Report 24359763 (Version 1)
Quarter: 2024Q3

REPORT INFORMATION
  Report Type: Spontaneous
  Country: JP (occurrence: JP)
  Receive Date: 20240924
  Receipt Date: 20240924
  Transmission Date: 20241016
  Serious: Yes (Hospitalization, Other)
  Sender: BRISTOL MYERS SQUIBB
  Company Number: JP-ONO-2024JP019361

PATIENT
  Age: 82 Year
  Sex: Female

DRUGS (1)
  1. OPDIVO [Suspect]
     Active Substance: NIVOLUMAB
     Indication: Gastric cancer
     Dosage: UNK
     Route: 041

REACTIONS (3)
  - Type 1 diabetes mellitus [Recovering/Resolving]
  - Diabetic ketoacidosis [Unknown]
  - Hyperglycaemic hyperosmolar nonketotic syndrome [Recovering/Resolving]
